FAERS Safety Report 10584082 (Version 1)
Quarter: 2014Q4

REPORT INFORMATION
  Report Type: Spontaneous
  Country: PE (occurrence: PE)
  Receive Date: 20141114
  Receipt Date: 20141114
  Transmission Date: 20150529
  Serious: Yes (Other)
  Sender: FDA-Public Use
  Company Number: PE-PFIZER INC-2014314028

PATIENT
  Age: 57 Year
  Sex: Female

DRUGS (2)
  1. LYRICA [Suspect]
     Active Substance: PREGABALIN
     Dosage: ONCE DAILY AT NIGHT
     Route: 048
  2. ANASTRAZOL [Concomitant]
     Dosage: UNK

REACTIONS (8)
  - Labyrinthitis [Unknown]
  - Musculoskeletal stiffness [Unknown]
  - Dizziness [Unknown]
  - Hallucination [Unknown]
  - Insomnia [Unknown]
  - Osteoarthritis [Unknown]
  - Suicidal ideation [Unknown]
  - Arthropathy [Not Recovered/Not Resolved]
